FAERS Safety Report 5510926-3 (Version None)
Quarter: 2007Q4

REPORT INFORMATION
  Report Type: 
  Country: None (occurrence: None)
  Receive Date: 20071106
  Receipt Date: 20071106
  Transmission Date: 20080405
  Serious: No
  Sender: FDA-Public Use
  Company Number: None

PATIENT
  Age: 39 Year
  Sex: Male
  Weight: 86.637 kg

DRUGS (1)
  1. CHANTIX [Suspect]
     Indication: SMOKING CESSATION THERAPY
     Dosage: .5 MG 2XPD PO
     Route: 048
     Dates: start: 20071023, end: 20071028

REACTIONS (2)
  - ILL-DEFINED DISORDER [None]
  - PHARMACEUTICAL PRODUCT COMPLAINT [None]
